FAERS Safety Report 4599573-8 (Version None)
Quarter: 2005Q1

REPORT INFORMATION
  Report Type: 
  Country: None (occurrence: None)
  Receive Date: 20050303
  Receipt Date: 20050211
  Transmission Date: 20050727
  Serious: Yes (Other)
  Sender: FDA-Public Use
  Company Number: US_0410107180

PATIENT
  Age: 51 Year
  Sex: Female
  Weight: 91 kg

DRUGS (38)
  1. ZYPREXA [Suspect]
     Indication: BIPOLAR DISORDER
     Dosage: 15 MG/2 DAY
     Dates: start: 20020712, end: 20040101
  2. PAXIL [Concomitant]
  3. CELEBREX [Concomitant]
  4. PREMARIN [Concomitant]
  5. ZANTAC [Concomitant]
  6. BEXTRA [Concomitant]
  7. POTASSIUM CHLORIDE [Concomitant]
  8. ERYTHROMYCIN [Concomitant]
  9. TIMOLOL MALEATE [Concomitant]
  10. LOTRISONE [Concomitant]
  11. XENICAL [Concomitant]
  12. LASIX [Concomitant]
  13. FAMVIR (PENCICLOVIR) [Concomitant]
  14. DOXYCYCLINE [Concomitant]
  15. CEOHALEXIN [Concomitant]
  16. PRILOSEC (OMEPRAZOLE RATIOPHARM) [Concomitant]
  17. PENTA-TRIAMTERENE HCTZ [Concomitant]
  18. ULTRAM [Concomitant]
  19. QUININE SULFATE [Concomitant]
  20. TIMOPTIC [Concomitant]
  21. ZYRTEC [Concomitant]
  22. FLEXERIL [Concomitant]
  23. ZOLOFT [Concomitant]
  24. NAPROXEN SODIUM [Concomitant]
  25. HYDROCODONE BITARTRATE [Concomitant]
  26. PROMETHAZINE [Concomitant]
  27. CLOROTRIMETON (CHLORPHENAMINE MALEATE) [Concomitant]
  28. SUCRALFATE [Concomitant]
  29. GLUCOVANCE [Concomitant]
  30. GLYBURIDE [Concomitant]
  31. DICLOFENAC SODIUM [Concomitant]
  32. PANLOR SS [Concomitant]
  33. GENTAMICIN [Concomitant]
  34. PREVACID [Concomitant]
  35. EASPRIN (ACETYLSALICYLIC ACID) [Concomitant]
  36. PATANOL (OLOPATADINE HYDROCHORIDE) [Concomitant]
  37. MULTIVITAMIN [Concomitant]
  38. CYCLOBENZAPRINE HCL [Concomitant]

REACTIONS (45)
  - ALANINE AMINOTRANSFERASE INCREASED [None]
  - ARTHRALGIA [None]
  - ASPARTATE AMINOTRANSFERASE INCREASED [None]
  - BACK PAIN [None]
  - BASAL CELL CARCINOMA [None]
  - BREAST MICROCALCIFICATION [None]
  - BRONCHITIS [None]
  - CONDITION AGGRAVATED [None]
  - DENTAL CARIES [None]
  - DEPRESSION [None]
  - DIABETES MELLITUS [None]
  - DIARRHOEA [None]
  - DRUG EFFECT DECREASED [None]
  - DYSLIPIDAEMIA [None]
  - DYSPHAGIA [None]
  - DYSPNOEA EXERTIONAL [None]
  - EAR DISORDER [None]
  - FATIGUE [None]
  - FUNGAL INFECTION [None]
  - GASTROINTESTINAL PAIN [None]
  - GLAUCOMA [None]
  - GLYCOSURIA [None]
  - GLYCOSYLATED HAEMOGLOBIN INCREASED [None]
  - GROIN ABSCESS [None]
  - HERPES SIMPLEX [None]
  - HORDEOLUM [None]
  - HYPERGLYCAEMIA [None]
  - HYPERPHAGIA [None]
  - HYPERTENSION [None]
  - HYPOGLYCAEMIA [None]
  - INSOMNIA [None]
  - LYMPHOCYTIC DERMATITIS [None]
  - MUSCULOSKELETAL PAIN [None]
  - OBESITY [None]
  - OEDEMA [None]
  - PERIODONTAL DISEASE [None]
  - POLYDIPSIA [None]
  - POLYURIA [None]
  - RASH [None]
  - RASH MACULO-PAPULAR [None]
  - RESTLESSNESS [None]
  - SINUSITIS [None]
  - TACHYCARDIA [None]
  - WEIGHT DECREASED [None]
  - WOUND [None]
